FAERS Safety Report 21383632 (Version 1)
Quarter: 2022Q3

REPORT INFORMATION
  Report Type: Report from Study
  Country: US (occurrence: US)
  Receive Date: 20220927
  Receipt Date: 20220927
  Transmission Date: 20221027
  Serious: Yes (Hospitalization, Other)
  Sender: FDA-Public Use
  Company Number: US-CELGENE-USA-20170904150

PATIENT
  Age: 71 Year
  Sex: Male
  Weight: 113 kg

DRUGS (31)
  1. NIVOLUMAB [Suspect]
     Active Substance: NIVOLUMAB
     Indication: Pancreatic carcinoma
     Dosage: 3 MILLIGRAM/KILOGRAM
     Route: 065
     Dates: start: 20170831, end: 20170917
  2. NIVOLUMAB [Suspect]
     Active Substance: NIVOLUMAB
     Dosage: 3 MILLIGRAM/KILOGRAM
     Route: 065
     Dates: end: 20170913
  3. NIVOLUMAB [Suspect]
     Active Substance: NIVOLUMAB
     Dosage: 3 MILLIGRAM/KILOGRAM
     Route: 065
     Dates: start: 20170927, end: 20171010
  4. GEMCITABINE HYDROCHLORIDE [Suspect]
     Active Substance: GEMCITABINE HYDROCHLORIDE
     Indication: Pancreatic carcinoma
     Dosage: 1000 MILLIGRAM/SQ. METER
     Route: 065
     Dates: start: 20170831, end: 20170917
  5. GEMCITABINE HYDROCHLORIDE [Suspect]
     Active Substance: GEMCITABINE HYDROCHLORIDE
     Dosage: 1000 MILLIGRAM/SQ. METER
     Route: 065
     Dates: end: 20170913
  6. GEMCITABINE HYDROCHLORIDE [Suspect]
     Active Substance: GEMCITABINE HYDROCHLORIDE
     Dosage: 1000 MILLIGRAM/SQ. METER
     Route: 065
     Dates: start: 20170927, end: 20171010
  7. TYLENOL [Concomitant]
     Active Substance: ACETAMINOPHEN
     Indication: Pyrexia
     Dosage: 1000 MG
     Route: 048
     Dates: start: 20170902, end: 20170902
  8. TYLENOL [Concomitant]
     Active Substance: ACETAMINOPHEN
     Indication: Prophylaxis
     Dosage: FREQUENCY TEXT: AS NEEDED?650 MILLIGRAM
     Route: 048
     Dates: start: 20170907
  9. AIRBORNE [Concomitant]
     Active Substance: HERBALS\MINERALS\VITAMINS
     Indication: Nasopharyngitis
     Route: 048
     Dates: start: 20170831
  10. PROCHLORPERAZINE [Concomitant]
     Active Substance: PROCHLORPERAZINE
     Indication: Prophylaxis of nausea and vomiting
     Dosage: FREQUENCY TEXT: AS NEEDED?10 MILLIGRAM
     Route: 048
     Dates: start: 20170828
  11. ONDANSETRON [Concomitant]
     Active Substance: ONDANSETRON
     Indication: Nausea
     Dosage: FREQUENCY TEXT: PRN?4 MG
     Route: 065
     Dates: start: 20170828, end: 20170901
  12. ONDANSETRON [Concomitant]
     Active Substance: ONDANSETRON
     Dosage: FREQUENCY TEXT: AS NEEDED?4 MILLIGRAM
     Route: 048
     Dates: start: 20170831, end: 20170917
  13. ASPIRIN [Concomitant]
     Active Substance: ASPIRIN
     Indication: Haemorrhage
     Dosage: 81 MG
     Route: 048
  14. BISMUTH SUBSALICYLATE [Concomitant]
     Active Substance: BISMUTH SUBSALICYLATE
     Indication: Product used for unknown indication
     Route: 065
  15. LOSARTAN [Concomitant]
     Active Substance: LOSARTAN
     Indication: Hypertension
     Dosage: 100 MILLIGRAM
     Route: 048
     Dates: start: 20170823, end: 20170913
  16. LOSARTAN [Concomitant]
     Active Substance: LOSARTAN
     Dosage: 100 MILLIGRAM
     Route: 048
     Dates: start: 20170917
  17. METOPROLOL [Concomitant]
     Active Substance: METOPROLOL
     Indication: Hypertension
     Dosage: 50 MILLIGRAM
     Route: 048
     Dates: start: 20170823
  18. OMEPRAZOLE [Concomitant]
     Active Substance: OMEPRAZOLE
     Indication: Gastrooesophageal reflux disease
     Dosage: 20 MILLIGRAM
     Route: 048
  19. TAMSULOSIN [Concomitant]
     Active Substance: TAMSULOSIN
     Indication: Benign prostatic hyperplasia
     Dosage: .4 MILLIGRAM
     Route: 048
  20. SULFAMETHOXAZOLE\TRIMETHOPRIM [Concomitant]
     Active Substance: SULFAMETHOXAZOLE\TRIMETHOPRIM
     Indication: Infection prophylaxis
     Dosage: 800-160MG
     Route: 048
     Dates: start: 20170915
  21. AMLODIPINE [Concomitant]
     Active Substance: AMLODIPINE BESYLATE
     Indication: Hypertension
     Dosage: 5 MILLIGRAM
     Route: 048
     Dates: start: 20170927
  22. CLONIDINE [Concomitant]
     Active Substance: CLONIDINE
     Indication: Hypertension
     Dosage: FREQUENCY TEXT: NOT PROVIDED?.4 MILLIGRAM
     Route: 048
     Dates: start: 20170927, end: 20170927
  23. HUMALOG [Concomitant]
     Active Substance: INSULIN LISPRO
     Indication: Hyperglycaemia
     Route: 058
     Dates: start: 20170914, end: 20170917
  24. SODIUM CHLORIDE [Concomitant]
     Active Substance: SODIUM CHLORIDE
     Indication: Premedication
     Dosage: FREQUENCY TEXT: ONCE?600 MILLILITER
     Route: 042
     Dates: start: 20170831, end: 20170831
  25. SODIUM CHLORIDE [Concomitant]
     Active Substance: SODIUM CHLORIDE
     Indication: Chronic kidney disease
     Dosage: FREQUENCY TEXT: ONCE?550 MILLILITER
     Route: 042
     Dates: start: 20170907, end: 20170907
  26. SODIUM CHLORIDE [Concomitant]
     Active Substance: SODIUM CHLORIDE
     Dosage: 125 MILLILITER
     Route: 042
     Dates: start: 20170913, end: 20170916
  27. SODIUM CHLORIDE [Concomitant]
     Active Substance: SODIUM CHLORIDE
     Dosage: FREQUENCY TEXT: ONCE?500 MILLILITER
     Route: 042
     Dates: start: 20170927, end: 20170927
  28. HEPARIN [Concomitant]
     Active Substance: HEPARIN SODIUM
     Indication: Thrombosis prophylaxis
     Dosage: 5000 IU (INTERNATIONAL UNIT)
     Route: 058
     Dates: start: 20170913, end: 20170916
  29. PANTOPRAZOLE [Concomitant]
     Active Substance: PANTOPRAZOLE
     Indication: Gastrooesophageal reflux disease
     Dosage: 40 MILLIGRAM
     Route: 048
     Dates: start: 20170914, end: 20170917
  30. INSULIN LISPRO [Concomitant]
     Active Substance: INSULIN LISPRO
     Indication: Hyperglycaemia
     Dosage: FREQUENCY TEXT: AS NEEDED?1 IU (INTERNATIONAL UNIT)
     Route: 058
     Dates: start: 20170914, end: 20170917
  31. HYDRALAZINE [Concomitant]
     Active Substance: HYDRALAZINE HYDROCHLORIDE
     Indication: Hypertension
     Dosage: 48 MILLIGRAM
     Route: 042
     Dates: start: 20170915, end: 20170916

REACTIONS (4)
  - Acute kidney injury [Recovered/Resolved]
  - Aspartate aminotransferase increased [Recovered/Resolved with Sequelae]
  - Acute kidney injury [Recovered/Resolved]
  - Alanine aminotransferase increased [Recovered/Resolved with Sequelae]

NARRATIVE: CASE EVENT DATE: 20170913
